FAERS Safety Report 11218463 (Version 2)
Quarter: 2015Q3

REPORT INFORMATION
  Report Type: Spontaneous
  Country: JP (occurrence: None)
  Receive Date: 20150623
  Receipt Date: 20150811
  Transmission Date: 20151125
  Serious: Yes (Hospitalization, Other)
  Sender: FDA-Public Use
  Company Number: 2015-JP-0084

PATIENT
  Age: 98 Year
  Sex: Female

DRUGS (10)
  1. MUCOSTA (REBAMIPIDE) [Concomitant]
  2. SARPOGRELATE (SARPOGRELATE HYDROCHLORIDE) [Concomitant]
  3. FARESTON [Suspect]
     Active Substance: TOREMIFENE CITRATE
     Indication: BREAST CANCER STAGE IV
     Dates: start: 201412
  4. HALFDIGOXIN (DIGOXINE) [Concomitant]
  5. LASIX [Concomitant]
     Active Substance: FUROSEMIDE
  6. ALDACTONE-A (SPIRONOLACTONE) [Concomitant]
  7. ACINON (NIZATIDINE) [Concomitant]
  8. BENIDIPINE HYDROCHLORIDE [Concomitant]
     Active Substance: BENIDIPINE HYDROCHLORIDE
  9. XARELTO [Concomitant]
     Active Substance: RIVAROXABAN
  10. METLIGINE (MIDODRINE HYDROCHLORIDE) [Concomitant]

REACTIONS (5)
  - Uterine cancer [None]
  - Endometrial hypertrophy [None]
  - Genital haemorrhage [None]
  - Abdominal pain [None]
  - Uterine haemorrhage [None]
